FAERS Safety Report 7999768-7 (Version None)
Quarter: 2011Q4

REPORT INFORMATION
  Report Type: 
  Country: None (occurrence: None)
  Receive Date: 20111222
  Receipt Date: 20111208
  Transmission Date: 20120403
  Serious: Yes (Death)
  Sender: FDA-Public Use
  Company Number: US-BRISTOL-MYERS SQUIBB COMPANY-16280653

PATIENT
  Age: 75 Year
  Sex: Female

DRUGS (14)
  1. DETROL LA [Concomitant]
     Dosage: DAILY
  2. BUMETANIDE [Concomitant]
  3. CELEBREX [Concomitant]
  4. ORENCIA [Suspect]
     Indication: RHEUMATOID ARTHRITIS
     Route: 042
     Dates: start: 20111208, end: 20111208
  5. LEUCOVORIN CALCIUM [Concomitant]
     Dosage: 2 Q SATURDAY
  6. VIGAMOX [Concomitant]
  7. METOPROLOL TARTRATE [Concomitant]
  8. HYDROCHLOROTHIAZIDE [Concomitant]
  9. METHOTREXATE [Concomitant]
     Dosage: 3 TID ON FRIDAY
  10. PREDNISONE TAB [Concomitant]
  11. AMOXICILLIN [Concomitant]
     Dosage: PRIOR TO DENTAL WORK
  12. KLOR-CON [Concomitant]
  13. LEVOTHYROXINE SODIUM [Concomitant]
  14. EYE DROPS [Concomitant]
     Route: 047

REACTIONS (2)
  - ANAPHYLACTIC REACTION [None]
  - GRAND MAL CONVULSION [None]
